FAERS Safety Report 18281405 (Version 4)
Quarter: 2020Q4

REPORT INFORMATION
  Report Type: Spontaneous
  Country: US (occurrence: US)
  Receive Date: 20200918
  Receipt Date: 20201117
  Transmission Date: 20210113
  Serious: Yes (Hospitalization, Other)
  Sender: FDA-Public Use
  Company Number: US-AMGEN-USASP2020150320

PATIENT
  Age: 79 Year
  Sex: Female
  Weight: 68.3 kg

DRUGS (5)
  1. EVENITY [Suspect]
     Active Substance: ROMOSOZUMAB-AQQG
     Indication: OSTEOPOROSIS POSTMENOPAUSAL
     Dosage: 210 MILLIGRAM, QMO
     Route: 058
     Dates: start: 20200909, end: 20200909
  2. EVENITY [Suspect]
     Active Substance: ROMOSOZUMAB-AQQG
     Indication: OSTEOPOROSIS
  3. BYDUREON [Concomitant]
     Active Substance: EXENATIDE
     Dosage: 2 MILLIGRAM, QWK
  4. METFORMIN [Concomitant]
     Active Substance: METFORMIN HYDROCHLORIDE
     Dosage: 1000 MILLIGRAM, BID
  5. ENALAPRIL [Concomitant]
     Active Substance: ENALAPRIL
     Dosage: 2.5 MILLIGRAM, BID

REACTIONS (3)
  - Acute myocardial infarction [Recovered/Resolved]
  - Compression fracture [Unknown]
  - Injection site swelling [Unknown]

NARRATIVE: CASE EVENT DATE: 202009
